FAERS Safety Report 4357909-7 (Version None)
Quarter: 2004Q2

REPORT INFORMATION
  Report Type: 
  Country: None (occurrence: None)
  Receive Date: 20040514
  Receipt Date: 20030130
  Transmission Date: 20050107
  Serious: Yes (Other)
  Sender: FDA-Public Use
  Company Number: PHEH2003US01124

PATIENT
  Age: 70 Year
  Sex: Female

DRUGS (16)
  1. ALLEGRA [Concomitant]
     Indication: CHRONIC SINUSITIS
     Dosage: UNK, PRN
  2. TAMOXIFEN CITRATE [Concomitant]
     Indication: BREAST CANCER
     Dosage: 20 MG, QD
     Dates: start: 20000302, end: 20010222
  3. ANASTROZOLE [Concomitant]
     Indication: BREAST CANCER
     Dosage: 1 UNK, QD
     Dates: start: 20010222, end: 20030211
  4. ALBUTEROL [Concomitant]
     Indication: ASTHMA
     Dosage: 2 PUFFS, PRN
  5. ADRIAMYCIN PFS [Concomitant]
  6. CYTOXAN [Concomitant]
  7. TAXOL [Concomitant]
  8. CORTICOSTEROIDS [Concomitant]
  9. AREDIA [Suspect]
     Indication: BREAST CANCER
     Dosage: Q28 DAYS
     Dates: start: 20010308, end: 20020507
  10. AMLODIPINE BESYLATE [Concomitant]
     Indication: HYPERTENSION
     Dosage: 5 MG, QD
  11. PAXIL [Concomitant]
     Indication: ANXIETY
     Dosage: 20 MG, QD
  12. ACCUPRIL [Concomitant]
     Indication: HYPERTENSION
     Dosage: 20 MG, QD
  13. CLARITIN [Concomitant]
  14. CALCIUM [Concomitant]
  15. XALATAN [Concomitant]
     Indication: GLAUCOMA
  16. ALPHAGAN [Concomitant]
     Indication: GLAUCOMA

REACTIONS (4)
  - CELLULITIS [None]
  - DYSPLASIA [None]
  - OSTEOMYELITIS [None]
  - OSTEONECROSIS [None]
